FAERS Safety Report 20738414 (Version 1)
Quarter: 2022Q2

REPORT INFORMATION
  Report Type: Spontaneous
  Country: CN (occurrence: CN)
  Receive Date: 20220422
  Receipt Date: 20220422
  Transmission Date: 20220720
  Serious: Yes (Hospitalization, Other)
  Sender: FDA-Public Use
  Company Number: CN-SA-SAC20220419001772

PATIENT
  Age: 71 Year
  Sex: Female
  Weight: 69 kg

DRUGS (2)
  1. ELOXATIN [Suspect]
     Active Substance: OXALIPLATIN
     Indication: Gastric cancer
     Dosage: 200 MG, TOTAL
     Route: 041
     Dates: start: 20220412, end: 20220412
  2. DEXTROSE [Concomitant]
     Active Substance: DEXTROSE
     Indication: Gastric cancer
     Dosage: 20 ML, TOTAL
     Route: 041

REACTIONS (8)
  - Loss of consciousness [Recovered/Resolved]
  - Urinary incontinence [Recovering/Resolving]
  - Lividity [Recovering/Resolving]
  - Cyanosis [Recovering/Resolving]
  - Pruritus [Recovering/Resolving]
  - Dyspnoea [Recovering/Resolving]
  - Nausea [Recovering/Resolving]
  - Vomiting [Recovering/Resolving]

NARRATIVE: CASE EVENT DATE: 20220412
